FAERS Safety Report 17650415 (Version 1)
Quarter: 2020Q2

REPORT INFORMATION
  Report Type: Spontaneous
  Country: CL (occurrence: EC)
  Receive Date: 20200409
  Receipt Date: 20200409
  Transmission Date: 20200713
  Serious: Yes (Death, Other)
  Sender: FDA-Public Use
  Company Number: EC-ASTELLAS-2020US004526

PATIENT
  Age: 69 Year
  Sex: Male

DRUGS (3)
  1. XTANDI [Suspect]
     Active Substance: ENZALUTAMIDE
     Indication: PROSTATE CANCER
     Route: 048
     Dates: start: 201905, end: 20200401
  2. BUPRENORPHINE. [Suspect]
     Active Substance: BUPRENORPHINE
     Indication: PAIN
  3. BUPRENORPHINE. [Suspect]
     Active Substance: BUPRENORPHINE
     Indication: PROSTATE CANCER
     Route: 062
     Dates: start: 202001, end: 202001

REACTIONS (5)
  - Death [Fatal]
  - Constipation [Recovered/Resolved]
  - Therapy interrupted [Unknown]
  - Malignant neoplasm progression [Unknown]
  - Product availability issue [Unknown]

NARRATIVE: CASE EVENT DATE: 201912
